FAERS Safety Report 23812369 (Version 3)
Quarter: 2024Q2

REPORT INFORMATION
  Report Type: Report from Study
  Country: CA (occurrence: CA)
  Receive Date: 20240503
  Receipt Date: 20240528
  Transmission Date: 20240715
  Serious: Yes (Hospitalization, Other)
  Sender: FDA-Public Use
  Company Number: CA-JNJFOC-20231231099

PATIENT
  Age: 44 Year
  Sex: Female

DRUGS (1)
  1. REMICADE [Suspect]
     Active Substance: INFLIXIMAB
     Indication: Hidradenitis
     Route: 041
     Dates: start: 20221024

REACTIONS (8)
  - Localised infection [Recovering/Resolving]
  - Lymphoma [Unknown]
  - Hidradenitis [Recovering/Resolving]
  - Vulval disorder [Unknown]
  - Fatigue [Recovered/Resolved]
  - Therapeutic product effect decreased [Unknown]
  - Product dose omission issue [Unknown]
  - Off label use [Unknown]

NARRATIVE: CASE EVENT DATE: 20231205
